FAERS Safety Report 5283586-7 (Version None)
Quarter: 2007Q2

REPORT INFORMATION
  Report Type: 
  Country: None (occurrence: None)
  Receive Date: 20070402
  Receipt Date: 20070321
  Transmission Date: 20071010
  Serious: Yes (Death)
  Sender: FDA-Public Use
  Company Number: CN-ROCHE-488682

PATIENT
  Age: 58 Year
  Sex: Male
  Weight: 54.2 kg

DRUGS (9)
  1. PEG-INTERFERON ALFA 2A (RO 25-8310) [Suspect]
     Route: 058
     Dates: start: 20060503, end: 20060920
  2. NIFEDIPINE [Concomitant]
     Dates: start: 20060822
  3. PRAZOSIN HCL [Concomitant]
     Dates: start: 20060822
  4. CALCIUM CARBONATE [Concomitant]
     Dates: start: 20060822
  5. ASPIRIN [Concomitant]
     Dates: start: 20060822
  6. LISINOPRIL [Concomitant]
     Dates: start: 20060822
  7. METOPROLOL TARTRATE [Concomitant]
     Dates: start: 20060822
  8. PANTOPRAZOLE SODIUM [Concomitant]
     Dates: start: 20060822
  9. POTASSIUM CHLORIDE [Concomitant]
     Dates: start: 20060822

REACTIONS (2)
  - PERITONITIS [None]
  - PNEUMONIA BACTERIAL [None]
